FAERS Safety Report 12250925 (Version 3)
Quarter: 2016Q2

REPORT INFORMATION
  Report Type: Spontaneous
  Country: IT (occurrence: IT)
  Receive Date: 20160409
  Receipt Date: 20160530
  Transmission Date: 20160815
  Serious: Yes (Other)
  Sender: FDA-Public Use
  Company Number: IT-ACCORD-036595

PATIENT
  Age: 58 Year
  Sex: Male
  Weight: 73 kg

DRUGS (1)
  1. GEMCITABINE/GEMCITABINE HYDROCHLORIDE [Suspect]
     Active Substance: GEMCITABINE\GEMCITABINE HYDROCHLORIDE
     Indication: CHOLANGIOCARCINOMA
     Dosage: ALSO RECEIVED 2350 MG CYCLICAL FROM 17-NOV-2015 TO 15-MAR-2016
     Route: 042
     Dates: start: 20151117, end: 20151124

REACTIONS (5)
  - Thrombocytopenia [Unknown]
  - Off label use [Unknown]
  - Palpitations [Recovered/Resolved]
  - Neutropenia [Unknown]
  - Nausea [Recovered/Resolved]

NARRATIVE: CASE EVENT DATE: 20151130
